FAERS Safety Report 6295778-9 (Version None)
Quarter: 2009Q3

REPORT INFORMATION
  Report Type: 
  Country: None (occurrence: None)
  Receive Date: 20090803
  Receipt Date: 20090803
  Transmission Date: 20100115
  Serious: Yes (Hospitalization)
  Sender: FDA-Public Use
  Company Number: None

PATIENT

DRUGS (1)
  1. SUMATRIPTAN SUCCINATE [Suspect]
     Dosage: 50MG PRN PO
     Route: 048
     Dates: start: 20090301, end: 20090701

REACTIONS (2)
  - ADVERSE EVENT [None]
  - DRUG EFFECT DECREASED [None]
